FAERS Safety Report 7259684-5 (Version None)
Quarter: 2011Q1

REPORT INFORMATION
  Report Type: 
  Country: None (occurrence: None)
  Receive Date: 20110130
  Receipt Date: 20100913
  Transmission Date: 20110831
  Serious: Yes (Other)
  Sender: FDA-Public Use
  Company Number: US-ABBOTT-10P-163-0649510-00

PATIENT
  Sex: Male
  Weight: 86.26 kg

DRUGS (4)
  1. HUMIRA [Suspect]
     Route: 058
     Dates: start: 20100710, end: 20100806
  2. PREDNISONE [Concomitant]
     Indication: PRODUCT USED FOR UNKNOWN INDICATION
     Dosage: UNK STRENGTH TO START PRIOR TO HUMIRA
     Route: 048
     Dates: start: 20100701
  3. ZYRTEC [Concomitant]
     Indication: PRODUCT USED FOR UNKNOWN INDICATION
     Dosage: TAKE WITH PRED PRIOR TO HUMIRA
     Route: 048
     Dates: start: 20100701
  4. HUMIRA [Suspect]
     Indication: CROHN'S DISEASE
     Dates: start: 20080101, end: 20100225

REACTIONS (4)
  - POST PROCEDURAL INFECTION [None]
  - INCISION SITE ERYTHEMA [None]
  - MUSCULOSKELETAL PAIN [None]
  - IMPAIRED HEALING [None]
